FAERS Safety Report 5672788-3 (Version None)
Quarter: 2008Q1

REPORT INFORMATION
  Report Type: 
  Country: None (occurrence: None)
  Receive Date: 20080319
  Receipt Date: 20071210
  Transmission Date: 20080703
  Serious: No
  Sender: FDA-Public Use
  Company Number: US-KINGPHARMUSA00001-K200701596

PATIENT

DRUGS (7)
  1. ALTACE [Suspect]
     Indication: HYPERTENSION
     Dosage: 2.5 MG, QD
     Dates: start: 20070901, end: 20070901
  2. ALTACE [Suspect]
     Indication: BLOOD PRESSURE FLUCTUATION
     Dosage: 10 MG, QD
     Dates: start: 20070901, end: 20071005
  3. ATENOLOL [Concomitant]
     Dosage: 25 MG, QD
  4. PLAVIX [Concomitant]
     Dosage: 75 MG, QD
  5. ASPIRIN [Concomitant]
     Dosage: 325 MG, QD
  6. PROTONIX /01263201/ [Concomitant]
  7. LIPITOR [Concomitant]
     Dosage: 10 MG, QD

REACTIONS (2)
  - COUGH [None]
  - DRUG INEFFECTIVE [None]
